FAERS Safety Report 4673757-2 (Version None)
Quarter: 2005Q2

REPORT INFORMATION
  Report Type: 
  Country: None (occurrence: None)
  Receive Date: 20050524
  Receipt Date: 20050511
  Transmission Date: 20051028
  Serious: Yes (Hospitalization)
  Sender: FDA-Public Use
  Company Number: 11111

PATIENT
  Age: 41 Year
  Sex: Female

DRUGS (3)
  1. EPIRUBICIN [Suspect]
  2. CARBOPLATIN [Suspect]
  3. FLUOROURACIL [Suspect]

REACTIONS (3)
  - MOUTH ULCERATION [None]
  - NEUTROPENIA [None]
  - PYREXIA [None]
